FAERS Safety Report 5803229-0 (Version None)
Quarter: 2008Q3

REPORT INFORMATION
  Report Type: 
  Country: None (occurrence: None)
  Receive Date: 20080708
  Receipt Date: 20080626
  Transmission Date: 20090109
  Serious: Yes (Other)
  Sender: FDA-Public Use
  Company Number: FR-ELI_LILLY_AND_COMPANY-FR200804007365

PATIENT
  Age: 22 Year
  Sex: Male
  Weight: 60 kg

DRUGS (3)
  1. CYMBALTA [Suspect]
     Indication: DEPRESSION
     Dosage: 60 MG, DAILY (1/D)
     Route: 048
     Dates: start: 20080317, end: 20080321
  2. RIVOTRIL [Concomitant]
     Indication: ANXIETY
     Dosage: 2 MG, DAILY (1/D)
     Route: 048
     Dates: start: 20080317
  3. LYSANXIA [Concomitant]
     Indication: ANXIETY
     Dosage: 150 MG, DAILY (1/D)
     Route: 048
     Dates: start: 20080317

REACTIONS (3)
  - HYPERTENSION [None]
  - PALPITATIONS [None]
  - SINUS TACHYCARDIA [None]
